FAERS Safety Report 8208163-7 (Version None)
Quarter: 2012Q1

REPORT INFORMATION
  Report Type: 
  Country: None (occurrence: None)
  Receive Date: 20120314
  Receipt Date: 20120307
  Transmission Date: 20120608
  Serious: Yes (Hospitalization)
  Sender: FDA-Public Use
  Company Number: PHEH2012US005344

PATIENT
  Sex: Female

DRUGS (1)
  1. GLEEVEC [Suspect]
     Indication: MALIGNANT MELANOMA
     Dosage: 400 MG, DAILY
     Route: 048
     Dates: start: 20110601

REACTIONS (4)
  - CHEST WALL MASS [None]
  - NEOPLASM PROGRESSION [None]
  - INTUSSUSCEPTION [None]
  - NEOPLASM MALIGNANT [None]
